FAERS Safety Report 7542090-3 (Version None)
Quarter: 2011Q2

REPORT INFORMATION
  Report Type: 
  Country: None (occurrence: None)
  Receive Date: 20110524
  Receipt Date: 20110328
  Transmission Date: 20111010
  Serious: No
  Sender: FDA-Public Use
  Company Number: 030176

PATIENT
  Sex: Female
  Weight: 71.6 kg

DRUGS (7)
  1. METHOTREXATE [Concomitant]
  2. FOLIC ACID [Concomitant]
  3. CALCIUM CARBONATE [Concomitant]
  4. CIMZIA [Suspect]
     Indication: RHEUMATOID ARTHRITIS
     Dosage: (400 MG, INDUCTION DOSE SUBCUTANEOUS)
     Route: 058
     Dates: start: 20110314
  5. DIFLUCAN [Concomitant]
  6. METHYLPREDNISOLONE [Concomitant]
  7. TRAMADOL HCL [Concomitant]

REACTIONS (1)
  - INJECTION SITE PAIN [None]
